FAERS Safety Report 9881764 (Version 1)
Quarter: 2014Q1

REPORT INFORMATION
  Report Type: Spontaneous
  Country: TW (occurrence: TW)
  Receive Date: 20140207
  Receipt Date: 20140207
  Transmission Date: 20141002
  Serious: Yes (Hospitalization, Other)
  Sender: FDA-Public Use
  Company Number: TW-JNJFOC-20140117287

PATIENT
  Age: 48 Year
  Sex: Female

DRUGS (2)
  1. RISPERIDONE [Suspect]
     Indication: MAJOR DEPRESSION
     Route: 065
     Dates: start: 201202
  2. PAROXETINE [Suspect]
     Indication: MAJOR DEPRESSION
     Route: 065
     Dates: start: 201202

REACTIONS (6)
  - Suicide attempt [Unknown]
  - Prolactinoma [Recovered/Resolved]
  - Blood oestrogen decreased [Recovered/Resolved]
  - Hyperprolactinaemia [Recovered/Resolved]
  - Drug ineffective [Unknown]
  - Menstruation delayed [Recovered/Resolved]
